FAERS Safety Report 12743524 (Version 1)
Quarter: 2016Q3

REPORT INFORMATION
  Report Type: Spontaneous
  Country: US (occurrence: US)
  Receive Date: 20160914
  Receipt Date: 20160914
  Transmission Date: 20161109
  Serious: Yes (Other)
  Sender: FDA-Public Use
  Company Number: None

PATIENT
  Age: 88 Year
  Sex: Female
  Weight: 63.5 kg

DRUGS (9)
  1. OMEGA 3 [Concomitant]
     Active Substance: OMEGA-3 FATTY ACIDS
  2. HYDROCHLOROTHIAZIDE. [Concomitant]
     Active Substance: HYDROCHLOROTHIAZIDE
  3. VITAMIN D [Concomitant]
     Active Substance: CHOLECALCIFEROL
  4. GLUCOSAMINE [Concomitant]
     Active Substance: GLUCOSAMINE
  5. TRAZODONE [Concomitant]
     Active Substance: TRAZODONE HYDROCHLORIDE
  6. VITAMIN B12 [Concomitant]
     Active Substance: CYANOCOBALAMIN
  7. SIMVASTATIN. [Concomitant]
     Active Substance: SIMVASTATIN
  8. CYMBALTA [Suspect]
     Active Substance: DULOXETINE HYDROCHLORIDE
     Indication: MUSCULOSKELETAL PAIN
     Route: 048
     Dates: start: 20160605, end: 20160605
  9. PREDNISONE. [Suspect]
     Active Substance: PREDNISONE
     Indication: MUSCULOSKELETAL PAIN
     Route: 048
     Dates: start: 20160605, end: 20160605

REACTIONS (4)
  - Hallucination, auditory [None]
  - Insomnia [None]
  - Weight decreased [None]
  - Depression [None]

NARRATIVE: CASE EVENT DATE: 20160605
